FAERS Safety Report 11236488 (Version 1)
Quarter: 2015Q3

REPORT INFORMATION
  Report Type: Spontaneous
  Country: FR (occurrence: FR)
  Receive Date: 20150702
  Receipt Date: 20150702
  Transmission Date: 20151125
  Serious: Yes (Hospitalization)
  Sender: FDA-Public Use
  Company Number: FR-009507513-1506FRA011671

PATIENT
  Sex: Female

DRUGS (1)
  1. NEXPLANON [Suspect]
     Active Substance: ETONOGESTREL
     Dosage: UNKNOWN
     Route: 059

REACTIONS (6)
  - Device dislocation [Recovered/Resolved]
  - Metrorrhagia [Unknown]
  - Oedema peripheral [Unknown]
  - Device difficult to use [Recovered/Resolved]
  - Appendicitis [Unknown]
  - Device deployment issue [Recovered/Resolved]
